FAERS Safety Report 8351236-9 (Version None)
Quarter: 2012Q2

REPORT INFORMATION
  Report Type: 
  Country: None (occurrence: None)
  Receive Date: 20120510
  Receipt Date: 20120507
  Transmission Date: 20120825
  Serious: Yes (Other)
  Sender: FDA-Public Use
  Company Number: US-BAYER-2012-045596

PATIENT

DRUGS (1)
  1. ASPIRIN [Suspect]
     Indication: HEADACHE
     Route: 048

REACTIONS (1)
  - ANEURYSM RUPTURED [None]
